FAERS Safety Report 8586185-4 (Version None)
Quarter: 2012Q3

REPORT INFORMATION
  Report Type: 
  Country: None (occurrence: None)
  Receive Date: 20120810
  Receipt Date: 20120801
  Transmission Date: 20120928
  Serious: Yes (Hospitalization)
  Sender: FDA-Public Use
  Company Number: FR-GLAXOSMITHKLINE-B0820158A

PATIENT
  Age: 74 Year
  Sex: Female
  Weight: 64 kg

DRUGS (9)
  1. PLAVIX [Suspect]
     Indication: MYOCARDIAL INFARCTION
     Route: 048
     Dates: start: 20120501
  2. BISOPROLOL FUMARATE [Suspect]
     Dosage: 3.75MG PER DAY
     Route: 048
     Dates: start: 20120508
  3. GLUCOPHAGE [Suspect]
     Indication: TYPE 2 DIABETES MELLITUS
     Dosage: 2G PER DAY
     Route: 048
     Dates: start: 20120505
  4. LASIX [Suspect]
     Dosage: 40MG PER DAY
     Route: 048
     Dates: start: 20120503
  5. ASPIRIN [Suspect]
     Dosage: 75MG PER DAY
     Route: 048
     Dates: start: 20120501
  6. ARIXTRA [Suspect]
     Indication: MYOCARDIAL INFARCTION
     Dosage: 2.5MG PER DAY
     Route: 058
     Dates: start: 20120501, end: 20120507
  7. REOPRO [Suspect]
     Route: 042
     Dates: start: 20120502, end: 20120502
  8. PERINDOPRIL ERBUMINE [Suspect]
     Dosage: 2MG PER DAY
     Route: 048
     Dates: start: 20120503
  9. ATORVASTATIN [Concomitant]

REACTIONS (1)
  - THROMBOCYTOPENIA [None]
